FAERS Safety Report 9217720 (Version 2)
Quarter: 2013Q2

REPORT INFORMATION
  Report Type: Spontaneous
  Country: US (occurrence: US)
  Receive Date: 20130408
  Receipt Date: 20130415
  Transmission Date: 20140414
  Serious: Yes (Death)
  Sender: FDA-Public Use
  Company Number: US-ABBOTT-13P-163-1072151-00

PATIENT
  Sex: Female

DRUGS (4)
  1. VICODIN [Suspect]
     Indication: PAIN
  2. VICODIN [Suspect]
     Dosage: SMALLER NUMBER PER DAY FOR BREAKTHROUGH PAIN
  3. BUTRANS [Suspect]
     Indication: PAIN
     Dosage: 10 MCG/H
  4. ALCOHOL [Suspect]
     Indication: PRODUCT USED FOR UNKNOWN INDICATION

REACTIONS (1)
  - Alcohol poisoning [Fatal]
